FAERS Safety Report 5609829-5 (Version None)
Quarter: 2008Q1

REPORT INFORMATION
  Report Type: 
  Country: None (occurrence: None)
  Receive Date: 20080131
  Receipt Date: 20071213
  Transmission Date: 20080703
  Serious: No
  Sender: FDA-Public Use
  Company Number: US-BAYER-200714184BCC

PATIENT
  Age: 93 Year
  Sex: Female
  Weight: 73 kg

DRUGS (5)
  1. ALEVE [Suspect]
     Indication: ARTHRALGIA
     Dosage: TOTAL DAILY DOSE: 440 MG  UNIT DOSE: 220 MG
     Route: 048
     Dates: start: 20071101
  2. POTASSIUM CHLORIDE [Concomitant]
  3. CALCIUM GLUCONATE [Concomitant]
  4. MULTI-VITAMIN [Concomitant]
  5. DIURETICS [Concomitant]

REACTIONS (1)
  - INSOMNIA [None]
